FAERS Safety Report 9697423 (Version 3)
Quarter: 2014Q1

REPORT INFORMATION
  Report Type: Spontaneous
  Country: US (occurrence: US)
  Receive Date: 20131120
  Receipt Date: 20140113
  Transmission Date: 20141002
  Serious: Yes (Other)
  Sender: FDA-Public Use
  Company Number: US-JNJFOC-20131107742

PATIENT
  Sex: Female
  Weight: 79.38 kg

DRUGS (9)
  1. NUCYNTA ER [Suspect]
     Indication: BACK PAIN
     Route: 048
     Dates: start: 20110416
  2. TEGRETOL [Suspect]
     Indication: PAIN
     Route: 065
  3. BACLOFEN [Suspect]
     Indication: MUSCLE SPASMS
     Route: 048
  4. BACLOFEN [Suspect]
     Indication: MUSCLE SPASMS
     Route: 048
     Dates: start: 201104
  5. THYROID [Concomitant]
     Indication: HYPOTHYROIDISM
     Route: 065
     Dates: start: 1999
  6. VENTOLIN HFA [Concomitant]
     Indication: ASTHMA
     Dosage: CHILD TO PRESENT
     Route: 055
  7. CYTOMEL [Concomitant]
     Indication: HYPOTHYROIDISM
     Route: 065
     Dates: start: 1999
  8. MULTIVITAMINS [Concomitant]
     Route: 065
     Dates: start: 1986
  9. PREDNISONE [Concomitant]
     Indication: DYSPNOEA
     Dosage: DAILY
     Route: 065

REACTIONS (3)
  - Asthma [Not Recovered/Not Resolved]
  - Gait disturbance [Not Recovered/Not Resolved]
  - Tooth disorder [Unknown]
